FAERS Safety Report 24728001 (Version 1)
Quarter: 2024Q4

REPORT INFORMATION
  Report Type: Other
  Country: US (occurrence: US)
  Receive Date: 20241212
  Receipt Date: 20241212
  Transmission Date: 20250114
  Serious: No
  Sender: MADRIGAL PHARMACEUTICALS
  Company Number: US-MADRIGAL PHARMACEUTICALS, INC-2024REZ3603

PATIENT

DRUGS (1)
  1. REZDIFFRA [Suspect]
     Active Substance: RESMETIROM
     Indication: Metabolic dysfunction-associated steatohepatitis
     Dosage: 80 MILLIGRAM, QD
     Route: 048
     Dates: start: 202411

REACTIONS (2)
  - Vomiting [Not Recovered/Not Resolved]
  - Liver function test increased [Not Recovered/Not Resolved]

NARRATIVE: CASE EVENT DATE: 20241101
